FAERS Safety Report 8539512-8 (Version None)
Quarter: 2012Q3

REPORT INFORMATION
  Report Type: 
  Country: None (occurrence: None)
  Receive Date: 20120726
  Receipt Date: 20120719
  Transmission Date: 20120928
  Serious: No
  Sender: FDA-Public Use
  Company Number: US-B.I. PHARMACEUTICALS,INC./RIDGEFIELD-2012-BP-16127BP

PATIENT
  Age: 50 Year
  Sex: Female

DRUGS (6)
  1. AMBIEN [Concomitant]
     Indication: INSOMNIA
     Dosage: 12.5 MG
     Route: 048
  2. LOSARTAN POTASSIUM AND HYDROCHLOROTHIAZIDE [Concomitant]
     Indication: HYPERTENSION
     Route: 048
  3. AMLODIPINE [Concomitant]
     Indication: HYPERTENSION
     Dosage: 5 MG
     Route: 048
  4. CYMBALTA [Concomitant]
     Indication: DEPRESSION
     Dosage: 120 MG
     Route: 048
  5. ABILIFY [Concomitant]
     Indication: DEPRESSION
     Dosage: 5 MG
     Route: 048
  6. ZANTAC [Suspect]
     Indication: DYSPEPSIA
     Route: 048
     Dates: start: 20120716, end: 20120717

REACTIONS (1)
  - DRUG INEFFECTIVE [None]
